FAERS Safety Report 4816945-4 (Version None)
Quarter: 2005Q4

REPORT INFORMATION
  Report Type: 
  Country: None (occurrence: None)
  Receive Date: 20051031
  Receipt Date: 20051031
  Transmission Date: 20060501
  Serious: Yes (Hospitalization)
  Sender: FDA-Public Use
  Company Number: None

PATIENT
  Age: 81 Year
  Sex: Male
  Weight: 74.8435 kg

DRUGS (7)
  1. ATENOLOL [Suspect]
     Indication: HYPERTENSION
     Dosage: 50 MG DAILY [RENEWED]
     Dates: start: 20041215, end: 20050717
  2. ACETAMINOPHEN [Concomitant]
  3. ALBUTEROL SOLN, INH [Concomitant]
  4. ATROPINE SULFATE [Concomitant]
  5. RANITIDINE HCL [Concomitant]
  6. SODIUM CHLORIDE [Concomitant]
  7. TRAVOPROST [Concomitant]

REACTIONS (2)
  - BRADYCARDIA [None]
  - HYPERTENSION [None]
